FAERS Safety Report 7076637-0 (Version None)
Quarter: 2010Q4

REPORT INFORMATION
  Report Type: 
  Country: None (occurrence: None)
  Receive Date: 20101101
  Receipt Date: 20101019
  Transmission Date: 20110411
  Serious: No
  Sender: FDA-Public Use
  Company Number: US-PFIZER INC-2010133563

PATIENT
  Age: 89 Year
  Sex: Female
  Weight: 68.027 kg

DRUGS (7)
  1. LIPITOR [Suspect]
     Indication: LOW DENSITY LIPOPROTEIN INCREASED
     Dosage: 5 MG, 1X/DAY
     Route: 048
     Dates: start: 20080904
  2. LIPITOR [Suspect]
     Dosage: 10 MG, 1X/DAY
  3. LIPITOR [Suspect]
     Dosage: 20 MG, 1X/DAY
  4. POTASSIUM [Concomitant]
     Dosage: UNK
  5. VALSARTAN [Concomitant]
     Dosage: UNK
  6. AMIODARONE [Concomitant]
     Dosage: UNK
  7. FUROSEMIDE [Concomitant]
     Dosage: UNK

REACTIONS (1)
  - ONYCHOCLASIS [None]
